FAERS Safety Report 10384112 (Version 4)
Quarter: 2016Q1

REPORT INFORMATION
  Report Type: Report from Study
  Country: FR (occurrence: FR)
  Receive Date: 20140814
  Receipt Date: 20160210
  Transmission Date: 20160525
  Serious: Yes (Hospitalization)
  Sender: FDA-Public Use
  Company Number: PHHY2014FR099012

PATIENT
  Age: 70 Year
  Sex: Male

DRUGS (1)
  1. AFINITOR [Suspect]
     Active Substance: EVEROLIMUS
     Indication: RENAL CELL CARCINOMA
     Dosage: 10 MG, QD
     Route: 065
     Dates: start: 201405, end: 20140625

REACTIONS (7)
  - Urinary retention [Recovered/Resolved]
  - Hyponatraemia [Unknown]
  - Prostatic adenoma [Recovered/Resolved]
  - Haematuria [Recovered/Resolved]
  - Tumour haemorrhage [Unknown]
  - Hypokalaemia [Unknown]
  - Acute kidney injury [Recovered/Resolved]

NARRATIVE: CASE EVENT DATE: 201406
